FAERS Safety Report 10481777 (Version 1)
Quarter: 2014Q3

REPORT INFORMATION
  Report Type: Spontaneous
  Country: US (occurrence: US)
  Receive Date: 20140929
  Receipt Date: 20140929
  Transmission Date: 20150326
  Serious: Yes (Other)
  Sender: FDA-Public Use
  Company Number: US-PFIZER INC-2014267001

PATIENT
  Age: 76 Year
  Sex: Female
  Weight: 75 kg

DRUGS (1)
  1. CELEBREX [Suspect]
     Active Substance: CELECOXIB
     Indication: ARTHRITIS
     Dosage: 200 MG, AS NEEDED
     Route: 048
     Dates: end: 2013

REACTIONS (4)
  - Body height decreased [Unknown]
  - Discomfort [Unknown]
  - Systemic lupus erythematosus [Unknown]
  - Fatigue [Unknown]

NARRATIVE: CASE EVENT DATE: 2013
